FAERS Safety Report 6179722-0 (Version None)
Quarter: 2009Q2

REPORT INFORMATION
  Report Type: 
  Country: None (occurrence: None)
  Receive Date: 20090505
  Receipt Date: 20090428
  Transmission Date: 20091009
  Serious: Yes (Disabling, Other)
  Sender: FDA-Public Use
  Company Number: GB-ELI_LILLY_AND_COMPANY-GB200904006549

PATIENT
  Age: 59 Year
  Sex: Male
  Weight: 129 kg

DRUGS (5)
  1. BYETTA [Suspect]
     Dosage: 5 UG, UNKNOWN
     Route: 058
     Dates: start: 20081212, end: 20081228
  2. AMLODIPINE [Concomitant]
     Dosage: 5 MG, UNKNOWN
     Route: 048
  3. BENDROFLUMETHIAZIDE [Concomitant]
     Dosage: 2.5 MG, UNKNOWN
     Route: 048
  4. QUINAPRIL [Concomitant]
     Dosage: 80 MG, UNKNOWN
     Route: 048
  5. SIMVASTATIN [Concomitant]
     Dosage: 10 MG, UNKNOWN
     Route: 048

REACTIONS (7)
  - ARTHRALGIA [None]
  - CONSTIPATION [None]
  - HEADACHE [None]
  - IMPAIRED WORK ABILITY [None]
  - INFLUENZA LIKE ILLNESS [None]
  - LETHARGY [None]
  - NAUSEA [None]
